FAERS Safety Report 24258074 (Version 4)
Quarter: 2025Q1

REPORT INFORMATION
  Report Type: Report from Study
  Country: US (occurrence: US)
  Receive Date: 20240828
  Receipt Date: 20250218
  Transmission Date: 20250408
  Serious: Yes (Hospitalization)
  Sender: ROCHE
  Company Number: US-ROCHE-10000061088

PATIENT
  Age: 66 Year
  Sex: Female
  Weight: 45.81 kg

DRUGS (7)
  1. RITUXAN [Suspect]
     Active Substance: RITUXIMAB
     Indication: Multiple sclerosis
     Dosage: DATES OF TREATMENT: 24/MAR/2023, 12/APR/2023, 18/DEC/2023.
     Route: 040
  2. RITUXAN [Suspect]
     Active Substance: RITUXIMAB
     Dosage: LAST DOSE ON /JAN/2024.
     Route: 040
  3. RITUXAN [Suspect]
     Active Substance: RITUXIMAB
     Route: 040
  4. OCREVUS [Suspect]
     Active Substance: OCRELIZUMAB
     Indication: Relapsing multiple sclerosis
     Route: 065
  5. ATORVASTATIN [Concomitant]
     Active Substance: ATORVASTATIN
     Dosage: LAST DOSE ON 18/AUG/2024.
     Route: 048
     Dates: start: 20240516
  6. CARVEDILOL [Concomitant]
     Active Substance: CARVEDILOL
     Dosage: TABLET COMES AS 12.5 MG. PATIENT TAKES 2 TABLETS DAILY. LAST DOSE ON 18/AUG/2024.
     Route: 048
     Dates: start: 20240516
  7. PRASUGREL [Concomitant]
     Active Substance: PRASUGREL
     Dosage: LAST DOSE ON 19/AUG/2024.
     Route: 048
     Dates: start: 20240516

REACTIONS (10)
  - Myocardial infarction [Recovered/Resolved]
  - Arterial disorder [Recovered/Resolved]
  - T-lymphocyte count decreased [Not Recovered/Not Resolved]
  - Contusion [Not Recovered/Not Resolved]
  - COVID-19 [Recovering/Resolving]
  - Asthenia [Not Recovered/Not Resolved]
  - Headache [Not Recovered/Not Resolved]
  - Dizziness [Not Recovered/Not Resolved]
  - Off label use [Unknown]
  - B-lymphocyte count decreased [Not Recovered/Not Resolved]

NARRATIVE: CASE EVENT DATE: 20240101
